FAERS Safety Report 21707591 (Version 1)
Quarter: 2022Q4

REPORT INFORMATION
  Report Type: Spontaneous
  Country: MX (occurrence: MX)
  Receive Date: 20221209
  Receipt Date: 20221209
  Transmission Date: 20230113
  Serious: Yes (Death, Hospitalization)
  Sender: FDA-Public Use
  Company Number: MX-BAYER-2022P028004

PATIENT
  Age: 10 Year
  Sex: Male

DRUGS (1)
  1. LAROTRECTINIB [Suspect]
     Active Substance: LAROTRECTINIB
     Indication: Malignant glioma
     Dosage: 100 MG, BID
     Route: 048
     Dates: start: 20220716, end: 20221129

REACTIONS (1)
  - Malignant glioma [Fatal]
